FAERS Safety Report 11011066 (Version 1)
Quarter: 2015Q2

REPORT INFORMATION
  Report Type: Spontaneous
  Country: IN (occurrence: IN)
  Receive Date: 20150410
  Receipt Date: 20150410
  Transmission Date: 20150821
  Serious: No
  Sender: FDA-Public Use
  Company Number: PHHY2015IN040170

PATIENT
  Age: 30 Year
  Sex: Male

DRUGS (2)
  1. TASIGNA [Suspect]
     Active Substance: NILOTINIB
     Indication: CHRONIC MYELOID LEUKAEMIA
     Dosage: 300 MG, BID
     Route: 065
  2. IMATINIB [Suspect]
     Active Substance: IMATINIB
     Indication: CHRONIC MYELOID LEUKAEMIA
     Dosage: UNK
     Route: 065

REACTIONS (7)
  - Psoriasis [Recovering/Resolving]
  - Skin plaque [Recovering/Resolving]
  - Skin lesion [Recovering/Resolving]
  - Erythrodermic psoriasis [Recovering/Resolving]
  - Skin exfoliation [Recovering/Resolving]
  - Drug resistance [Unknown]
  - Pruritus [Recovering/Resolving]
